FAERS Safety Report 7557171-8 (Version None)
Quarter: 2011Q2

REPORT INFORMATION
  Report Type: 
  Country: None (occurrence: None)
  Receive Date: 20110620
  Receipt Date: 20110614
  Transmission Date: 20111010
  Serious: Yes (Other)
  Sender: FDA-Public Use
  Company Number: GB-PFIZER INC-2011114135

PATIENT
  Sex: Female

DRUGS (4)
  1. CALCICHEW [Concomitant]
  2. GENOTROPIN [Suspect]
     Dosage: 0.2 MG, 1X/DAY
     Dates: start: 20100101, end: 20110501
  3. GENOTROPIN [Suspect]
     Dosage: 0.1 MG, 1X/DAY
     Dates: end: 20110517
  4. VITAMIN D [Concomitant]

REACTIONS (4)
  - ARTHRALGIA [None]
  - PAIN [None]
  - MYALGIA [None]
  - MUSCULAR WEAKNESS [None]
